FAERS Safety Report 12317030 (Version 1)
Quarter: 2016Q2

REPORT INFORMATION
  Report Type: Spontaneous
  Country: US (occurrence: None)
  Receive Date: 20160428
  Receipt Date: 20160428
  Transmission Date: 20160815
  Serious: Yes (Life-Threatening, Hospitalization)
  Sender: FDA-Public Use
  Company Number: None

PATIENT
  Age: 16 Year
  Sex: Female
  Weight: 43.09 kg

DRUGS (4)
  1. SERTRALINE, 100 MG LUPIN [Suspect]
     Active Substance: SERTRALINE HYDROCHLORIDE
     Indication: ANXIETY
     Route: 048
     Dates: start: 20160402, end: 20160419
  2. TRAZODONE [Concomitant]
     Active Substance: TRAZODONE HYDROCHLORIDE
  3. SERTRALINE, 50 MG LUPIN [Suspect]
     Active Substance: SERTRALINE HYDROCHLORIDE
     Indication: ANXIETY
     Route: 048
     Dates: start: 20160225, end: 20160401
  4. MELATONIN [Concomitant]
     Active Substance: MELATONIN

REACTIONS (6)
  - Decreased appetite [None]
  - Suicidal ideation [None]
  - Nausea [None]
  - Tremor [None]
  - Dizziness [None]
  - Sedation [None]

NARRATIVE: CASE EVENT DATE: 20160416
